FAERS Safety Report 9116273 (Version 1)
Quarter: 2013Q1

REPORT INFORMATION
  Report Type: Spontaneous
  Country: US (occurrence: US)
  Receive Date: 20130225
  Receipt Date: 20130225
  Transmission Date: 20140127
  Serious: Yes (Other)
  Sender: FDA-Public Use
  Company Number: US-ELI_LILLY_AND_COMPANY-US201209005770

PATIENT
  Age: 75 Year
  Sex: Female
  Weight: 95.69 kg

DRUGS (8)
  1. CYMBALTA [Suspect]
     Indication: FIBROMYALGIA
     Dosage: 60 MG, QD
     Route: 048
     Dates: start: 201104
  2. CYMBALTA [Suspect]
     Dosage: 90 MG, QD
     Route: 048
  3. CYMBALTA [Suspect]
     Dosage: 60 MG, QD
     Route: 048
  4. CYMBALTA [Suspect]
     Dosage: 30 MG, QD
     Route: 048
     Dates: end: 20121020
  5. BENAZEPRIL [Concomitant]
     Dosage: 20 MG, UNKNOWN
  6. METOPROLOL SUCCINATE [Concomitant]
     Dosage: 50 MG, QD
  7. PREDNISONE [Concomitant]
     Dosage: 1 MG, QID
  8. LEVOTHYROXINE [Concomitant]
     Dosage: 0.1 MG, QD

REACTIONS (8)
  - Upper limb fracture [Recovered/Resolved]
  - Fall [Recovered/Resolved]
  - Supraventricular extrasystoles [Recovered/Resolved]
  - Contusion [Recovered/Resolved]
  - Pruritus [Recovered/Resolved]
  - Fall [Recovered/Resolved]
  - Ecchymosis [Recovered/Resolved]
  - Gait disturbance [Unknown]
